FAERS Safety Report 7752821-5 (Version None)
Quarter: 2011Q3

REPORT INFORMATION
  Report Type: 
  Country: None (occurrence: None)
  Receive Date: 20110915
  Receipt Date: 20110902
  Transmission Date: 20111222
  Serious: Yes (Other)
  Sender: FDA-Public Use
  Company Number: PHHY2011BR43706

PATIENT
  Age: 29 Year
  Sex: Female

DRUGS (3)
  1. TASIGNA [Suspect]
     Indication: CHRONIC MYELOID LEUKAEMIA
     Route: 048
     Dates: start: 20110501, end: 20110701
  2. CONTRACEPTIVES NOS [Concomitant]
  3. LEVOTHYROXINE SODIUM [Concomitant]
     Dosage: 50 UG, DAILY
     Dates: start: 20110826

REACTIONS (7)
  - FATIGUE [None]
  - NERVOUSNESS [None]
  - RASH [None]
  - ALOPECIA [None]
  - HYPOTHYROIDISM [None]
  - IRRITABILITY [None]
  - WEIGHT INCREASED [None]
